FAERS Safety Report 17596983 (Version 17)
Quarter: 2025Q1

REPORT INFORMATION
  Report Type: Report from Study
  Country: CA (occurrence: None)
  Receive Date: 20200330
  Receipt Date: 20250128
  Transmission Date: 20250408
  Serious: Yes (Other)
  Sender: ORION
  Company Number: CA-ORION CORPORATION ORION PHARMA-TREX2020-1566

PATIENT
  Age: 66 Year
  Sex: Female
  Weight: 74 kg

DRUGS (117)
  1. METHOTREXATE [Suspect]
     Active Substance: METHOTREXATE
     Indication: Product used for unknown indication
  2. ACTEMRA [Suspect]
     Active Substance: TOCILIZUMAB
     Indication: Rheumatoid arthritis
     Dosage: CYCLIC
  3. ACTEMRA [Suspect]
     Active Substance: TOCILIZUMAB
  4. ACTEMRA [Suspect]
     Active Substance: TOCILIZUMAB
     Dosage: CYCLIC
  5. ACTEMRA [Suspect]
     Active Substance: TOCILIZUMAB
     Dosage: CYCLIC
  6. ACTEMRA [Suspect]
     Active Substance: TOCILIZUMAB
     Dosage: CYCLICAL
  7. ACTEMRA [Suspect]
     Active Substance: TOCILIZUMAB
     Dosage: CYCLICAL
  8. ACTEMRA [Suspect]
     Active Substance: TOCILIZUMAB
     Dosage: CYCLIC
  9. ACTEMRA [Suspect]
     Active Substance: TOCILIZUMAB
  10. ACTEMRA [Suspect]
     Active Substance: TOCILIZUMAB
     Dosage: CYCLICAL
  11. ACTEMRA [Suspect]
     Active Substance: TOCILIZUMAB
     Dosage: CYCLICAL
  12. ACTEMRA [Suspect]
     Active Substance: TOCILIZUMAB
     Dosage: CYCLICAL
  13. ACTEMRA [Suspect]
     Active Substance: TOCILIZUMAB
     Dosage: CYCLICAL
  14. ACTEMRA [Suspect]
     Active Substance: TOCILIZUMAB
     Dosage: CYCLICAL
  15. ACTEMRA [Suspect]
     Active Substance: TOCILIZUMAB
     Dosage: CYCLICAL
  16. ACTEMRA [Suspect]
     Active Substance: TOCILIZUMAB
     Dosage: CYCLICAL
  17. ACTEMRA [Suspect]
     Active Substance: TOCILIZUMAB
     Dosage: CYCLICAL
  18. ACTEMRA [Suspect]
     Active Substance: TOCILIZUMAB
     Dosage: CYCLICAL
  19. ACTEMRA [Suspect]
     Active Substance: TOCILIZUMAB
     Dosage: CYCLICAL
  20. ACTEMRA [Suspect]
     Active Substance: TOCILIZUMAB
     Dosage: CYCLICAL
  21. ACTEMRA [Suspect]
     Active Substance: TOCILIZUMAB
  22. ACTEMRA [Suspect]
     Active Substance: TOCILIZUMAB
     Dosage: CYCLICAL
  23. ACTEMRA [Suspect]
     Active Substance: TOCILIZUMAB
     Dosage: CYCLICAL
  24. ACTEMRA [Suspect]
     Active Substance: TOCILIZUMAB
     Dosage: CYCLICAL
  25. ACTEMRA [Suspect]
     Active Substance: TOCILIZUMAB
     Dosage: CYCLICAL
  26. ACTEMRA [Suspect]
     Active Substance: TOCILIZUMAB
     Dosage: CYCLICAL
  27. ACTEMRA [Suspect]
     Active Substance: TOCILIZUMAB
  28. ACTEMRA [Suspect]
     Active Substance: TOCILIZUMAB
     Dosage: CYCLICAL
  29. ACTEMRA [Suspect]
     Active Substance: TOCILIZUMAB
     Dosage: CYCLICAL
  30. ACTEMRA [Suspect]
     Active Substance: TOCILIZUMAB
     Dosage: CYCLICAL
  31. ACTEMRA [Suspect]
     Active Substance: TOCILIZUMAB
     Dosage: CYCLICAL
  32. ACTEMRA [Suspect]
     Active Substance: TOCILIZUMAB
     Dosage: CYCLICAL
  33. ACTEMRA [Suspect]
     Active Substance: TOCILIZUMAB
     Dosage: CYCLICAL
  34. ACTEMRA [Suspect]
     Active Substance: TOCILIZUMAB
     Dosage: CYCLICAL
  35. ACTEMRA [Suspect]
     Active Substance: TOCILIZUMAB
     Dosage: CYCLICAL
  36. ACTEMRA [Suspect]
     Active Substance: TOCILIZUMAB
     Dosage: CYCLICAL
  37. ACTEMRA [Suspect]
     Active Substance: TOCILIZUMAB
  38. ACTEMRA [Suspect]
     Active Substance: TOCILIZUMAB
     Dosage: CYCLICAL
  39. ACTEMRA [Suspect]
     Active Substance: TOCILIZUMAB
     Dosage: CYCLICAL
  40. ACTEMRA [Suspect]
     Active Substance: TOCILIZUMAB
  41. ACTEMRA [Suspect]
     Active Substance: TOCILIZUMAB
     Dosage: CYCLICAL
  42. ACTEMRA [Suspect]
     Active Substance: TOCILIZUMAB
     Dosage: CYCLICAL
  43. ACTEMRA [Suspect]
     Active Substance: TOCILIZUMAB
  44. ACTEMRA [Suspect]
     Active Substance: TOCILIZUMAB
     Dosage: CYCLICAL
  45. ACTEMRA [Suspect]
     Active Substance: TOCILIZUMAB
     Dosage: CYCLICAL
  46. ACTEMRA [Suspect]
     Active Substance: TOCILIZUMAB
     Dosage: CYCLICAL
  47. ACTEMRA [Suspect]
     Active Substance: TOCILIZUMAB
     Dosage: CYCLICAL
  48. ACTEMRA [Suspect]
     Active Substance: TOCILIZUMAB
     Dosage: CYCLICAL
  49. ACTEMRA [Suspect]
     Active Substance: TOCILIZUMAB
     Dosage: CYCLICAL
  50. ACTEMRA [Suspect]
     Active Substance: TOCILIZUMAB
     Dosage: CYCLICAL
  51. ACTEMRA [Suspect]
     Active Substance: TOCILIZUMAB
  52. ACTEMRA [Suspect]
     Active Substance: TOCILIZUMAB
  53. ACTEMRA [Suspect]
     Active Substance: TOCILIZUMAB
  54. ACTEMRA [Suspect]
     Active Substance: TOCILIZUMAB
  55. ACTEMRA [Suspect]
     Active Substance: TOCILIZUMAB
  56. ACTEMRA [Suspect]
     Active Substance: TOCILIZUMAB
  57. ACTEMRA [Suspect]
     Active Substance: TOCILIZUMAB
  58. ACTEMRA [Suspect]
     Active Substance: TOCILIZUMAB
  59. ACTEMRA [Suspect]
     Active Substance: TOCILIZUMAB
  60. ACTEMRA [Suspect]
     Active Substance: TOCILIZUMAB
  61. ACTEMRA [Suspect]
     Active Substance: TOCILIZUMAB
  62. ACTEMRA [Suspect]
     Active Substance: TOCILIZUMAB
  63. ACTEMRA [Suspect]
     Active Substance: TOCILIZUMAB
  64. ACTEMRA [Suspect]
     Active Substance: TOCILIZUMAB
  65. ACTEMRA [Suspect]
     Active Substance: TOCILIZUMAB
  66. ACTEMRA [Suspect]
     Active Substance: TOCILIZUMAB
  67. ACTEMRA [Suspect]
     Active Substance: TOCILIZUMAB
  68. ACTEMRA [Suspect]
     Active Substance: TOCILIZUMAB
  69. ACTEMRA [Suspect]
     Active Substance: TOCILIZUMAB
  70. ACTEMRA [Suspect]
     Active Substance: TOCILIZUMAB
  71. ACTEMRA [Suspect]
     Active Substance: TOCILIZUMAB
  72. ACTEMRA [Suspect]
     Active Substance: TOCILIZUMAB
  73. ACTEMRA [Suspect]
     Active Substance: TOCILIZUMAB
  74. ACTEMRA [Suspect]
     Active Substance: TOCILIZUMAB
  75. ACTEMRA [Suspect]
     Active Substance: TOCILIZUMAB
  76. ACTEMRA [Suspect]
     Active Substance: TOCILIZUMAB
  77. ACTEMRA [Suspect]
     Active Substance: TOCILIZUMAB
  78. ACTEMRA [Suspect]
     Active Substance: TOCILIZUMAB
  79. ACTEMRA [Suspect]
     Active Substance: TOCILIZUMAB
  80. ACTEMRA [Suspect]
     Active Substance: TOCILIZUMAB
  81. ACTEMRA [Suspect]
     Active Substance: TOCILIZUMAB
  82. ACTEMRA [Suspect]
     Active Substance: TOCILIZUMAB
  83. ALENDRONATE SODIUM [Concomitant]
     Active Substance: ALENDRONATE SODIUM
  84. AMITRIPTYLINE [Concomitant]
     Active Substance: AMITRIPTYLINE
  85. AMITRIPTYLINE [Concomitant]
     Active Substance: AMITRIPTYLINE
  86. CELEBREX [Concomitant]
     Active Substance: CELECOXIB
  87. CELEBREX [Concomitant]
     Active Substance: CELECOXIB
  88. CELEBREX [Concomitant]
     Active Substance: CELECOXIB
  89. CLONAZEPAM [Concomitant]
     Active Substance: CLONAZEPAM
  90. CLONAZEPAM [Concomitant]
     Active Substance: CLONAZEPAM
  91. CLONAZEPAM [Concomitant]
     Active Substance: CLONAZEPAM
  92. FOLIC ACID [Concomitant]
     Active Substance: FOLIC ACID
  93. FERROUS SULFATE ANHYDROUS [Concomitant]
     Active Substance: FERROUS SULFATE ANHYDROUS
  94. LORAZEPAM [Concomitant]
     Active Substance: LORAZEPAM
  95. LORAZEPAM [Concomitant]
     Active Substance: LORAZEPAM
  96. PANTOPRAZOLE SODIUM [Concomitant]
     Active Substance: PANTOPRAZOLE SODIUM
  97. PANTOPRAZOLE SODIUM [Concomitant]
     Active Substance: PANTOPRAZOLE SODIUM
  98. PREDNISONE [Concomitant]
     Active Substance: PREDNISONE
  99. QUETIAPINE [Concomitant]
     Active Substance: QUETIAPINE
  100. QUETIAPINE [Concomitant]
     Active Substance: QUETIAPINE
  101. QUETIAPINE [Concomitant]
     Active Substance: QUETIAPINE
  102. TELMISARTAN [Concomitant]
     Active Substance: TELMISARTAN
  103. TELMISARTAN [Concomitant]
     Active Substance: TELMISARTAN
  104. TYLENOL [Concomitant]
     Active Substance: ACETAMINOPHEN
     Indication: Premedication
  105. TYLENOL [Concomitant]
     Active Substance: ACETAMINOPHEN
  106. VENLAFAXINE HYDROCHLORIDE [Concomitant]
     Active Substance: VENLAFAXINE HYDROCHLORIDE
  107. VENLAFAXINE HYDROCHLORIDE [Concomitant]
     Active Substance: VENLAFAXINE HYDROCHLORIDE
  108. ACETAMINOPHEN [Concomitant]
     Active Substance: ACETAMINOPHEN
     Indication: Premedication
  109. ACETAMINOPHEN [Concomitant]
     Active Substance: ACETAMINOPHEN
  110. ADVAIR HFA [Concomitant]
     Active Substance: FLUTICASONE PROPIONATE\SALMETEROL XINAFOATE
  111. TIOTROPIUM BROMIDE MONOHYDRATE [Concomitant]
     Active Substance: TIOTROPIUM BROMIDE MONOHYDRATE
  112. PANTOPRAZOLE SODIUM [Concomitant]
     Active Substance: PANTOPRAZOLE SODIUM
  113. SPIRIVA [Concomitant]
     Active Substance: TIOTROPIUM BROMIDE MONOHYDRATE
  114. PANTOPRAZOLE [Concomitant]
     Active Substance: PANTOPRAZOLE
  115. VENLAFAXINE [Concomitant]
     Active Substance: VENLAFAXINE HYDROCHLORIDE
  116. VENTOLIN [Concomitant]
     Active Substance: ALBUTEROL SULFATE
  117. RIVOTRIL [Concomitant]
     Active Substance: CLONAZEPAM

REACTIONS (34)
  - Pancytopenia [Not Recovered/Not Resolved]
  - Cystitis [Not Recovered/Not Resolved]
  - Malaise [Not Recovered/Not Resolved]
  - Nausea [Not Recovered/Not Resolved]
  - Arthralgia [Not Recovered/Not Resolved]
  - Arthritis [Not Recovered/Not Resolved]
  - Blood pressure diastolic abnormal [Not Recovered/Not Resolved]
  - Blood pressure fluctuation [Not Recovered/Not Resolved]
  - Blood pressure increased [Not Recovered/Not Resolved]
  - Blood pressure systolic increased [Not Recovered/Not Resolved]
  - Disability assessment scale score increased [Not Recovered/Not Resolved]
  - Dyspepsia [Not Recovered/Not Resolved]
  - Ear haemorrhage [Not Recovered/Not Resolved]
  - Erythema [Not Recovered/Not Resolved]
  - Fall [Not Recovered/Not Resolved]
  - Gait inability [Not Recovered/Not Resolved]
  - Head injury [Not Recovered/Not Resolved]
  - Joint stiffness [Not Recovered/Not Resolved]
  - Joint swelling [Not Recovered/Not Resolved]
  - Nail injury [Not Recovered/Not Resolved]
  - Pain [Not Recovered/Not Resolved]
  - Pain in extremity [Not Recovered/Not Resolved]
  - Urinary incontinence [Not Recovered/Not Resolved]
  - Weight decreased [Not Recovered/Not Resolved]
  - Weight increased [Not Recovered/Not Resolved]
  - Wrist fracture [Not Recovered/Not Resolved]
  - Confusional state [Not Recovered/Not Resolved]
  - Dementia [Not Recovered/Not Resolved]
  - Insomnia [Not Recovered/Not Resolved]
  - Oxygen saturation decreased [Not Recovered/Not Resolved]
  - Body temperature increased [Not Recovered/Not Resolved]
  - Blood pressure systolic abnormal [Not Recovered/Not Resolved]
  - Vascular access site extravasation [Not Recovered/Not Resolved]
  - Heart rate decreased [Not Recovered/Not Resolved]
